FAERS Safety Report 5029021-5 (Version None)
Quarter: 2006Q2

REPORT INFORMATION
  Report Type: 
  Country: None (occurrence: None)
  Receive Date: 20060613
  Receipt Date: 20060605
  Transmission Date: 20061013
  Serious: Yes (Hospitalization)
  Sender: FDA-Public Use
  Company Number: 2006P1000246

PATIENT
  Age: 66 Year
  Sex: Male
  Weight: 80 kg

DRUGS (8)
  1. RETEPLASE (RETEPLASE) [Suspect]
     Indication: ACUTE MYOCARDIAL INFARCTION
     Dosage: IV
     Route: 042
     Dates: start: 20050912, end: 20050912
  2. REOPRO [Suspect]
     Indication: ACUTE MYOCARDIAL INFARCTION
     Dosage: IV
     Route: 042
     Dates: start: 20050912
  3. FLUVASTATIN [Concomitant]
  4. CARVEDILOL [Concomitant]
  5. RAMIPRIL [Concomitant]
  6. INDOBUFEN [Concomitant]
  7. OMEPRAZOLE [Concomitant]
  8. ISOSORBIDE [Concomitant]

REACTIONS (4)
  - ANEURYSM [None]
  - ATRIAL FIBRILLATION [None]
  - CORONARY ARTERY STENOSIS [None]
  - INCISIONAL DRAINAGE [None]
